FAERS Safety Report 4476868-X (Version None)
Quarter: 2004Q3

REPORT INFORMATION
  Report Type: 
  Country: None (occurrence: None)
  Receive Date: 20040923
  Receipt Date: 20040615
  Transmission Date: 20050211
  Serious: No
  Sender: FDA-Public Use
  Company Number: USA040670294

PATIENT
  Sex: Female

DRUGS (1)
  1. FORTEO [Suspect]
     Indication: HIP FRACTURE
     Dates: start: 20040401

REACTIONS (11)
  - CHEST WALL PAIN [None]
  - CHROMATURIA [None]
  - COUGH [None]
  - DEHYDRATION [None]
  - FUNGAL INFECTION [None]
  - HYPERCHLORHYDRIA [None]
  - INSOMNIA [None]
  - NAUSEA [None]
  - STOMACH DISCOMFORT [None]
  - VOMITING [None]
  - WEIGHT DECREASED [None]
